FAERS Safety Report 8244000-2 (Version None)
Quarter: 2012Q1

REPORT INFORMATION
  Report Type: 
  Country: None (occurrence: None)
  Receive Date: 20120329
  Receipt Date: 20120326
  Transmission Date: 20120608
  Serious: No
  Sender: FDA-Public Use
  Company Number: US-TEVA-330122USA

PATIENT
  Sex: Male

DRUGS (2)
  1. DISULFIRAM [Concomitant]
  2. PROAIR HFA [Suspect]
     Dosage: PRN

REACTIONS (1)
  - BREATH ALCOHOL TEST POSITIVE [None]
